FAERS Safety Report 4893150-7 (Version None)
Quarter: 2005Q4

REPORT INFORMATION
  Report Type: 
  Country: None (occurrence: None)
  Receive Date: 20051223
  Receipt Date: 20051101
  Transmission Date: 20060501
  Serious: No
  Sender: FDA-Public Use
  Company Number: 219093

PATIENT
  Age: 67 Year
  Sex: Female

DRUGS (2)
  1. AVASTIN [Suspect]
     Indication: NON-SMALL CELL LUNG CANCER
     Dosage: 5 MG/KG, Q2W
  2. ABRAXANE (PACLITAXEL) [Concomitant]

REACTIONS (2)
  - EPISTAXIS [None]
  - HAEMOPTYSIS [None]
